FAERS Safety Report 4705938-3 (Version None)
Quarter: 2005Q2

REPORT INFORMATION
  Report Type: 
  Country: None (occurrence: None)
  Receive Date: 20050628
  Receipt Date: 20040505
  Transmission Date: 20051028
  Serious: Yes (Other)
  Sender: FDA-Public Use
  Company Number: VISP-PR-0405C-0178

PATIENT
  Age: 78 Year
  Sex: Male
  Weight: 68.0396 kg

DRUGS (20)
  1. VISIPAQUE [Suspect]
     Indication: CHEST PAIN
     Dosage: 200 ML, SINGLE DOSE, I.A.
     Route: 013
     Dates: start: 20040415, end: 20040415
  2. CORLOPAM [Concomitant]
  3. ACETYLCYSTEINE [Concomitant]
  4. PLAVIX [Concomitant]
  5. METOPROLOL TARTRATE (LOPRESSOR) [Concomitant]
  6. LASIX [Concomitant]
  7. ASPIRIN [Concomitant]
  8. ZOCOR [Concomitant]
  9. AVAPRO [Concomitant]
  10. MULTI-VITAMINS [Concomitant]
  11. SERETIDE MITE (ADVAIR 50/50) [Concomitant]
  12. GLIPIZIDE [Concomitant]
  13. AVANDIA [Concomitant]
  14. COMBIVENT [Concomitant]
  15. NITROGLYCERINE SPRAY [Concomitant]
  16. MIDAZOLAM HYDROCHLORIDE [Concomitant]
  17. FENTANYL [Concomitant]
  18. HEPARIN [Concomitant]
  19. SODIUM CHLORIDE (NORMAL SALINE) [Concomitant]
  20. LIDOCAINE HYDROCHLORIDE 1% (XYLOCAINE) [Concomitant]

REACTIONS (1)
  - ANAPHYLACTIC REACTION [None]
